FAERS Safety Report 10563425 (Version 2)
Quarter: 2014Q4

REPORT INFORMATION
  Report Type: Spontaneous
  Country: US (occurrence: US)
  Receive Date: 20141104
  Receipt Date: 20141104
  Transmission Date: 20150529
  Serious: Yes (Hospitalization, Other)
  Sender: FDA-Public Use
  Company Number: US-GLAXOSMITHKLINE-B0725030A

PATIENT
  Age: 73 Year
  Sex: Female

DRUGS (1)
  1. AVANDIA [Suspect]
     Active Substance: ROSIGLITAZONE MALEATE
     Indication: DIABETES MELLITUS
     Dosage: UNK
     Route: 048
     Dates: start: 20010804, end: 20061206

REACTIONS (8)
  - Dementia [Unknown]
  - Transient ischaemic attack [Unknown]
  - Carotid artery stenosis [Unknown]
  - Cerebrovascular accident [Not Recovered/Not Resolved]
  - Cerebral infarction [Unknown]
  - Hemiparesis [Unknown]
  - Cerebral haemorrhage [Unknown]
  - Physical disability [Unknown]

NARRATIVE: CASE EVENT DATE: 200801
